APPROVED DRUG PRODUCT: DOCOSANOL
Active Ingredient: DOCOSANOL
Strength: 10%
Dosage Form/Route: CREAM;TOPICAL
Application: A212385 | Product #001
Applicant: P AND L DEVELOPMENT LLC
Approved: Oct 7, 2022 | RLD: No | RS: No | Type: OTC